FAERS Safety Report 10071577 (Version 1)
Quarter: 2014Q2

REPORT INFORMATION
  Report Type: Spontaneous
  Country: FR (occurrence: FR)
  Receive Date: 20140410
  Receipt Date: 20140410
  Transmission Date: 20141212
  Serious: Yes (Other)
  Sender: FDA-Public Use
  Company Number: PHHY2014FR043500

PATIENT
  Age: 50 Year
  Sex: Male

DRUGS (5)
  1. CICLOSPORIN [Suspect]
     Indication: IMMUNOSUPPRESSION
  2. AZATHIOPRINE [Suspect]
     Indication: IMMUNOSUPPRESSION
  3. MYCOPHENOLATE MOFETIL [Suspect]
     Indication: IMMUNOSUPPRESSION
  4. CORTICOSTEROIDS [Suspect]
     Indication: IMMUNOSUPPRESSION
  5. ANGIOTENSIN CONVERTING ENZYME BLOCKERS [Concomitant]

REACTIONS (2)
  - Granulomatosis with polyangiitis [Unknown]
  - Disseminated tuberculosis [Unknown]
